FAERS Safety Report 5245644-2 (Version None)
Quarter: 2007Q1

REPORT INFORMATION
  Report Type: 
  Country: None (occurrence: None)
  Receive Date: 20070223
  Receipt Date: 20070221
  Transmission Date: 20070707
  Serious: Yes (Other)
  Sender: FDA-Public Use
  Company Number: ES-ROXANE LABORATORIES, INC-2007-DE-01069GD

PATIENT
  Sex: Female

DRUGS (3)
  1. SERTRALINE [Suspect]
     Indication: AFFECTIVE DISORDER
  2. SERTRALINE [Suspect]
  3. ZOLPIDEM TARTRATE [Suspect]
     Indication: AFFECTIVE DISORDER

REACTIONS (6)
  - ELEVATED MOOD [None]
  - IRRITABILITY [None]
  - LOGORRHOEA [None]
  - NEGATIVISM [None]
  - OBSESSIVE THOUGHTS [None]
  - PSYCHOMOTOR HYPERACTIVITY [None]
